FAERS Safety Report 6055522-7 (Version None)
Quarter: 2009Q1

REPORT INFORMATION
  Report Type: 
  Country: None (occurrence: None)
  Receive Date: 20090128
  Receipt Date: 20090123
  Transmission Date: 20090719
  Serious: Yes (Other)
  Sender: FDA-Public Use
  Company Number: A0765496A

PATIENT
  Age: 15 Month
  Sex: Male

DRUGS (2)
  1. SERETIDE [Suspect]
     Indication: ASTHMA
     Dosage: 1PUFF PER DAY
     Dates: start: 20090119, end: 20090120
  2. FLUTICASONE PROPIONATE [Concomitant]

REACTIONS (1)
  - CYANOSIS [None]
